FAERS Safety Report 5848949-7 (Version None)
Quarter: 2008Q3

REPORT INFORMATION
  Report Type: 
  Country: None (occurrence: None)
  Receive Date: 20080819
  Receipt Date: 20080811
  Transmission Date: 20090109
  Serious: Yes (Other)
  Sender: FDA-Public Use
  Company Number: PHHY2008DE17809

PATIENT
  Age: 78 Year
  Sex: Female

DRUGS (1)
  1. ESTRADERM TTS 25 [Suspect]
     Indication: HOT FLUSH
     Dosage: UNK

REACTIONS (2)
  - EMBOLISM [None]
  - HOT FLUSH [None]
